FAERS Safety Report 7208440-2 (Version None)
Quarter: 2011Q1

REPORT INFORMATION
  Report Type: 
  Country: None (occurrence: None)
  Receive Date: 20110104
  Receipt Date: 20101221
  Transmission Date: 20110831
  Serious: Yes (Other)
  Sender: FDA-Public Use
  Company Number: PHHY2010JP88087

PATIENT

DRUGS (2)
  1. RASILEZ [Suspect]
     Indication: HYPERTENSION
     Dosage: 150 MG DAILY
     Route: 048
  2. RASILEZ [Suspect]
     Dosage: 150 MG DAILY
     Route: 048

REACTIONS (2)
  - BLOOD PRESSURE INCREASED [None]
  - PLATELET COUNT DECREASED [None]
